FAERS Safety Report 6223532-2 (Version None)
Quarter: 2009Q2

REPORT INFORMATION
  Report Type: 
  Country: None (occurrence: None)
  Receive Date: 20090610
  Receipt Date: 20090605
  Transmission Date: 20091009
  Serious: Yes (Other)
  Sender: FDA-Public Use
  Company Number: SPV1-2009-01070

PATIENT
  Sex: Female

DRUGS (2)
  1. VYVANSE [Suspect]
     Indication: ATTENTION DEFICIT/HYPERACTIVITY DISORDER
     Dosage: 20 MG, 1X/DAY:QD, ORAL
     Route: 048
     Dates: start: 20090401, end: 20090522
  2. PERIACTIN (CYPROHEPTADINE HYDROCHLORIDE) TABLET [Concomitant]

REACTIONS (5)
  - HEADACHE [None]
  - MYDRIASIS [None]
  - OFF LABEL USE [None]
  - OPTIC DISC DISORDER [None]
  - VISION BLURRED [None]
